FAERS Safety Report 6232612-7 (Version None)
Quarter: 2009Q2

REPORT INFORMATION
  Report Type: 
  Country: None (occurrence: None)
  Receive Date: 20090615
  Receipt Date: 20090522
  Transmission Date: 20091009
  Serious: Yes (Other)
  Sender: FDA-Public Use
  Company Number: 8039800

PATIENT
  Age: 3 Year
  Sex: Female
  Weight: 22.7 kg

DRUGS (5)
  1. ZYRTEC [Suspect]
     Indication: URTICARIA
     Dosage: 5 ML ONCE PO
     Route: 048
     Dates: start: 20081108, end: 20081108
  2. XYZAL [Suspect]
     Dates: start: 20081105
  3. DECADRON [Suspect]
     Indication: URTICARIA
     Dosage: 1 MG 1/D
     Dates: start: 20081108
  4. SINGULAIR [Suspect]
     Indication: RESPIRATORY TRACT INFECTION
     Dates: start: 20081105
  5. ZITHROMAX [Suspect]
     Indication: RESPIRATORY TRACT INFECTION
     Dates: start: 20081105

REACTIONS (2)
  - ANAPHYLACTIC SHOCK [None]
  - URTICARIA [None]
